FAERS Safety Report 23328390 (Version 1)
Quarter: 2023Q4

REPORT INFORMATION
  Report Type: Spontaneous
  Country: US (occurrence: US)
  Receive Date: 20231221
  Receipt Date: 20231221
  Transmission Date: 20240110
  Serious: Yes (Life-Threatening, Other)
  Sender: FDA-Public Use
  Company Number: US-009507513-2312USA005596

PATIENT
  Age: 8 Month
  Sex: Female
  Weight: 8.3 kg

DRUGS (5)
  1. BRIDION [Suspect]
     Active Substance: SUGAMMADEX
     Indication: General anaesthesia
     Dosage: 4 MILLIGRAM/KILOGRAM
     Route: 042
  2. BRIDION [Suspect]
     Active Substance: SUGAMMADEX
     Dosage: 5 MILLIGRAM/KILOGRAM
     Route: 042
  3. FENTANYL [Concomitant]
     Active Substance: FENTANYL\FENTANYL CITRATE
     Indication: General anaesthesia
     Dosage: 3 MICROGRAM PER KILOGRAM
  4. MIDAZOLAM [Concomitant]
     Active Substance: MIDAZOLAM
     Indication: General anaesthesia
     Dosage: 0.1 MILLIGRAM/KILOGRAM
  5. ROCURONIUM [Concomitant]
     Active Substance: ROCURONIUM BROMIDE
     Indication: General anaesthesia
     Dosage: 1.2 MILLIGRAM/KILOGRAM

REACTIONS (4)
  - Cardiac arrest [Recovered/Resolved]
  - Bradycardia [Recovered/Resolved]
  - Product administered to patient of inappropriate age [Unknown]
  - Incorrect dose administered [Unknown]
